FAERS Safety Report 4501010-6 (Version None)
Quarter: 2004Q4

REPORT INFORMATION
  Report Type: 
  Country: None (occurrence: None)
  Receive Date: 20041115
  Receipt Date: 20041103
  Transmission Date: 20050328
  Serious: Yes (Life-Threatening)
  Sender: FDA-Public Use
  Company Number: CN-GLAXOSMITHKLINE-B0350712A

PATIENT
  Age: 80 Year
  Sex: Male

DRUGS (5)
  1. SEROXAT [Suspect]
     Dosage: 20MG PER DAY
  2. CEREBRAL INFARCTION MEDICATION [Concomitant]
     Indication: CEREBRAL INFARCTION
     Dates: start: 20041008, end: 20041026
  3. NORVASC [Concomitant]
     Indication: HYPERTENSION
     Route: 048
  4. PROSCAR [Concomitant]
     Indication: BENIGN PROSTATIC HYPERPLASIA
     Route: 048
     Dates: end: 20041031
  5. ALPRAZOLAM [Concomitant]
     Indication: INSOMNIA
     Route: 048
     Dates: end: 20041010

REACTIONS (7)
  - ASTHMA [None]
  - CARDIAC DISORDER [None]
  - DECREASED APPETITE [None]
  - DELIRIUM [None]
  - FATIGUE [None]
  - HYPONATRAEMIA [None]
  - LUNG INFECTION [None]
